FAERS Safety Report 6881301-4 (Version None)
Quarter: 2010Q3

REPORT INFORMATION
  Report Type: 
  Country: None (occurrence: None)
  Receive Date: 20100728
  Receipt Date: 20100720
  Transmission Date: 20110219
  Serious: Yes (Hospitalization)
  Sender: FDA-Public Use
  Company Number: US-MILLENNIUM PHARMACEUTICALS, INC.-2010-03493

PATIENT
  Sex: Female
  Weight: 56.689 kg

DRUGS (13)
  1. VELCADE [Suspect]
     Indication: MULTIPLE MYELOMA
     Dosage: 1.3 MG/M2, CYCLIC
     Route: 040
     Dates: start: 20100301, end: 20100701
  2. VELCADE [Suspect]
     Dosage: 2.0 MG, CYCLIC
     Route: 040
     Dates: start: 20100301, end: 20100701
  3. MELPHALAN [Suspect]
     Indication: MULTIPLE MYELOMA
     Dosage: 16 MG, CYCLIC
     Route: 048
     Dates: start: 20100301, end: 20100527
  4. PREDNISONE [Suspect]
     Indication: MULTIPLE MYELOMA
     Dosage: 100 MG, CYCLIC
     Route: 048
     Dates: start: 20100301, end: 20100527
  5. ZOMETA [Concomitant]
     Indication: PRODUCT USED FOR UNKNOWN INDICATION
  6. METFORMIN HCL [Concomitant]
     Indication: TYPE 2 DIABETES MELLITUS
     Dosage: 500 MG, BID
     Route: 048
  7. SYNTHROID [Concomitant]
     Indication: HYPOTHYROIDISM
     Dosage: 50 UG, QD
     Route: 048
  8. FLORINEF [Concomitant]
     Indication: ORTHOSTATIC HYPOTENSION
     Dosage: 0.2 MG, QD
     Route: 048
  9. SIMVASTATIN [Concomitant]
     Indication: HYPERCHOLESTEROLAEMIA
     Dosage: 40 MG, QD
     Route: 048
  10. KLOR-CON [Concomitant]
     Indication: PRODUCT USED FOR UNKNOWN INDICATION
     Dosage: 20 MEQ, QD
     Route: 048
  11. CENTRUM SILVER                     /01292501/ [Concomitant]
     Indication: PRODUCT USED FOR UNKNOWN INDICATION
     Dosage: UNK
     Route: 048
  12. ACETAMINOPHEN [Concomitant]
     Indication: PAIN
     Dosage: 600 MG, PRN
     Route: 048
  13. ACETAMINOPHEN [Concomitant]
     Indication: PYREXIA

REACTIONS (4)
  - CLOSTRIDIUM DIFFICILE COLITIS [None]
  - DIARRHOEA [None]
  - HYPOKALAEMIA [None]
  - ORTHOSTATIC HYPOTENSION [None]
